FAERS Safety Report 25156966 (Version 1)
Quarter: 2025Q2

REPORT INFORMATION
  Report Type: Spontaneous
  Country: FR (occurrence: FR)
  Receive Date: 20250403
  Receipt Date: 20250403
  Transmission Date: 20250717
  Serious: Yes (Hospitalization, Other)
  Sender: TEVA
  Company Number: None

PATIENT
  Age: 71 Year
  Sex: Male
  Weight: 65.4 kg

DRUGS (8)
  1. OXALIPLATIN [Suspect]
     Active Substance: OXALIPLATIN
     Indication: Oesophageal adenocarcinoma stage III
     Dosage: C2
     Route: 042
     Dates: start: 20250224, end: 20250224
  2. OXALIPLATIN [Suspect]
     Active Substance: OXALIPLATIN
     Indication: Oesophageal adenocarcinoma stage III
     Dosage: C1
     Route: 042
     Dates: start: 20250207, end: 20250207
  3. TRASTUZUMAB [Suspect]
     Active Substance: TRASTUZUMAB
     Indication: Oesophageal adenocarcinoma stage III
     Dosage: C2, ((MAMMIFERE/HAMSTER/CELLULES CHO))
     Route: 042
     Dates: start: 20250224, end: 20250224
  4. TRASTUZUMAB [Suspect]
     Active Substance: TRASTUZUMAB
     Indication: Oesophageal adenocarcinoma stage III
     Dosage: C1, ((MAMMIFERE/HAMSTER/CELLULES CHO))
     Route: 042
     Dates: start: 20250207, end: 20250207
  5. FLUOROURACIL [Suspect]
     Active Substance: FLUOROURACIL
     Indication: Oesophageal adenocarcinoma stage III
     Dosage: 46H INFUSER
     Route: 042
     Dates: start: 20250224, end: 20250226
  6. FLUOROURACIL [Suspect]
     Active Substance: FLUOROURACIL
     Indication: Oesophageal adenocarcinoma stage III
     Route: 042
     Dates: start: 20250224, end: 20250224
  7. FLUOROURACIL [Suspect]
     Active Substance: FLUOROURACIL
     Indication: Oesophageal adenocarcinoma stage III
     Route: 042
     Dates: start: 20250207, end: 20250207
  8. FLUOROURACIL [Suspect]
     Active Substance: FLUOROURACIL
     Indication: Oesophageal adenocarcinoma stage III
     Dosage: 46H INFUSER
     Route: 042
     Dates: start: 20250207, end: 20250209

REACTIONS (4)
  - Diarrhoea [Recovering/Resolving]
  - Erythema [Recovered/Resolved]
  - Palmar-plantar erythrodysaesthesia syndrome [Recovering/Resolving]
  - Stomatitis [Recovering/Resolving]

NARRATIVE: CASE EVENT DATE: 20250209
